FAERS Safety Report 4424030-9 (Version None)
Quarter: 2004Q3

REPORT INFORMATION
  Report Type: 
  Country: None (occurrence: None)
  Receive Date: 20040812
  Receipt Date: 20000605
  Transmission Date: 20050211
  Serious: Yes (Hospitalization)
  Sender: FDA-Public Use
  Company Number: J/00/05702/SIM

PATIENT
  Age: 12 Year
  Sex: Male
  Weight: 42 kg

DRUGS (3)
  1. SANDIMMUNE [Suspect]
     Indication: IDIOPATHIC THROMBOCYTOPENIC PURPURA
     Dosage: 100 MG/D
     Route: 048
     Dates: start: 19990601, end: 20000505
  2. PREDNISOLONE [Concomitant]
     Indication: IDIOPATHIC THROMBOCYTOPENIC PURPURA
     Dosage: 20 - 10 - 5 MG/D
     Route: 065
     Dates: start: 19990601
  3. ISALON [Concomitant]
     Indication: GASTRIC ULCER
     Dosage: 100 MG/D
     Route: 065
     Dates: start: 19990601

REACTIONS (1)
  - BLOOD AMYLASE INCREASED [None]
